FAERS Safety Report 8267959-6 (Version None)
Quarter: 2012Q2

REPORT INFORMATION
  Report Type: 
  Country: None (occurrence: None)
  Receive Date: 20120409
  Receipt Date: 20120328
  Transmission Date: 20120825
  Serious: Yes (Hospitalization, Other)
  Sender: FDA-Public Use
  Company Number: PHHY2006BR03406

PATIENT
  Age: 67 Year
  Sex: Female
  Weight: 78 kg

DRUGS (5)
  1. DIOVAN HCT [Suspect]
     Dosage: 2 DF A DAY
     Dates: start: 20110101
  2. AMLODIPINE [Concomitant]
     Dosage: 1 DF, QD, IN THE AFTERNOON
     Dates: start: 20110101
  3. SELOPRES [Concomitant]
     Indication: HYPERTENSION
     Dosage: 1 DF, QD, IN THE MORNING
     Route: 048
     Dates: start: 20110101
  4. DIOVAN HCT [Suspect]
     Indication: HYPERTENSION
     Dosage: 1 DF, QD, IN THE AFTERNOON
     Route: 048
  5. ALPRAZOLAM [Concomitant]
     Indication: ANXIETY
     Dosage: 1 DF, QD, BEFORE SLEEP
     Route: 048

REACTIONS (12)
  - HEART RATE INCREASED [None]
  - HYPERHIDROSIS [None]
  - VENOUS THROMBOSIS LIMB [None]
  - EXTRASYSTOLES [None]
  - PAIN IN EXTREMITY [None]
  - BALANCE DISORDER [None]
  - JOINT SWELLING [None]
  - OEDEMA PERIPHERAL [None]
  - HYPERTENSION [None]
  - VISION BLURRED [None]
  - DIZZINESS [None]
  - BRONCHITIS [None]
